FAERS Safety Report 14478809 (Version 12)
Quarter: 2020Q2

REPORT INFORMATION
  Report Type: Other
  Country: CA (occurrence: CA)
  Receive Date: 20180202
  Receipt Date: 20200612
  Transmission Date: 20200713
  Serious: Yes (Other)
  Sender: FDA-Public Use
  Company Number: CA-APOTEX-2018AP006058

PATIENT
  Age: 84 Year
  Sex: Female

DRUGS (64)
  1. ROSUVASTATIN. [Suspect]
     Active Substance: ROSUVASTATIN
     Dosage: UNK
     Route: 065
  2. BETAHISTINE [Suspect]
     Active Substance: BETAHISTINE
     Dosage: UNK
     Route: 065
  3. APO-LEVOCARB CR [Suspect]
     Active Substance: CARBIDOPA\LEVODOPA
     Dosage: UNK UNK, QD
     Route: 065
  4. ERGOCALCIFEROL. [Suspect]
     Active Substance: ERGOCALCIFEROL
     Indication: OSTEOPOROSIS
     Dosage: 1000 IU, QD
     Route: 065
  5. LEVOTHYROXINE. [Suspect]
     Active Substance: LEVOTHYROXINE
     Indication: HYPOTHYROIDISM
     Dosage: 0.05 MG, QD
     Route: 065
  6. TRAZODONE [Suspect]
     Active Substance: TRAZODONE HYDROCHLORIDE
     Dosage: 50.0 MG, QD
     Route: 048
  7. REACTINE                           /00884302/ [Suspect]
     Active Substance: CETIRIZINE HYDROCHLORIDE
     Indication: EYE PRURITUS
     Dosage: 20 MG, QD
     Route: 065
  8. BETAHISTINE [Suspect]
     Active Substance: BETAHISTINE
     Dosage: 8 MG, BID
     Route: 065
  9. CANDESARTAN CILEXETIL AND HYDROCHLOROTHIAZIDE [Suspect]
     Active Substance: CANDESARTAN CILEXETIL\HYDROCHLOROTHIAZIDE
     Dosage: 4 MG, QD
     Route: 048
  10. TRAZODONE [Suspect]
     Active Substance: TRAZODONE HYDROCHLORIDE
     Dosage: 25 MG, UNK
     Route: 065
  11. CITALOPRAM [Suspect]
     Active Substance: CITALOPRAM HYDROBROMIDE
     Indication: DEPRESSED MOOD
     Dosage: 5 MG, QD
     Route: 065
  12. TIMOLOL. [Suspect]
     Active Substance: TIMOLOL
     Dosage: UNK UNK, BID
     Route: 047
  13. CANDESARTAN. [Suspect]
     Active Substance: CANDESARTAN
     Dosage: 1 DF, QD
     Route: 065
  14. APO-LEVOCARB CR [Suspect]
     Active Substance: CARBIDOPA\LEVODOPA
     Indication: PARKINSON^S DISEASE
     Dosage: 2.0 DF, TID
     Route: 065
  15. PANTOPRAZOLE [Suspect]
     Active Substance: PANTOPRAZOLE
     Indication: NAUSEA
     Dosage: 40 MG, QD
     Route: 065
  16. PANTOPRAZOLE [Suspect]
     Active Substance: PANTOPRAZOLE
     Dosage: 40 MG, QD
     Route: 048
  17. TRAZODONE [Suspect]
     Active Substance: TRAZODONE HYDROCHLORIDE
     Dosage: 50 MG, QD
     Route: 065
  18. DIMENHYDRINATE. [Suspect]
     Active Substance: DIMENHYDRINATE
     Indication: NAUSEA
     Dosage: 50 MG, UNK
     Route: 065
  19. RISEDRONATE [Suspect]
     Active Substance: RISEDRONATE SODIUM
     Indication: OSTEOPOROSIS
     Dosage: 150.0 MG, UNK
     Route: 065
  20. CANDESARTAN. [Suspect]
     Active Substance: CANDESARTAN
     Indication: HYPERTENSION
     Dosage: 4 MG, QD
     Route: 065
  21. ACTONEL [Suspect]
     Active Substance: RISEDRONATE SODIUM
     Dosage: 150 MG, UNK
     Route: 065
  22. TRAZODONE [Suspect]
     Active Substance: TRAZODONE HYDROCHLORIDE
     Indication: INSOMNIA
     Dosage: 25.0 MG, UNK
     Route: 065
  23. TRAZODONE [Suspect]
     Active Substance: TRAZODONE HYDROCHLORIDE
     Dosage: 50.0 MG, QD
     Route: 065
  24. CANDESARTAN CILEXETIL AND HYDROCHLOROTHIAZIDE [Suspect]
     Active Substance: CANDESARTAN CILEXETIL\HYDROCHLOROTHIAZIDE
     Indication: HYPERTENSION
     Dosage: UNK UNK, QD
     Route: 065
  25. CANDESARTAN CILEXETIL AND HYDROCHLOROTHIAZIDE [Suspect]
     Active Substance: CANDESARTAN CILEXETIL\HYDROCHLOROTHIAZIDE
     Dosage: 4 MG, UNK
     Route: 065
  26. RISEDRONATE [Suspect]
     Active Substance: RISEDRONATE SODIUM
     Dosage: UNK
     Route: 065
  27. RISEDRONATE [Suspect]
     Active Substance: RISEDRONATE SODIUM
     Dosage: 150 MG, UNK
     Route: 065
  28. TIMOLOL. [Suspect]
     Active Substance: TIMOLOL
     Indication: GLAUCOMA
     Dosage: 1 DF, BID
     Route: 047
  29. RISEDRONIC ACID [Suspect]
     Active Substance: RISEDRONIC ACID
     Indication: OSTEOPOROSIS
     Dosage: 150 MG, QD
     Route: 065
  30. APO-BISOPROLOL [Suspect]
     Active Substance: BISOPROLOL FUMARATE
     Indication: PRODUCT USED FOR UNKNOWN INDICATION
     Dosage: 1.25 MG, QD
     Route: 065
  31. APO-CITALOPRAM [Suspect]
     Active Substance: CITALOPRAM HYDROBROMIDE
     Dosage: 5 MG, QD
     Route: 065
  32. APO-TRAZODONE [Suspect]
     Active Substance: TRAZODONE HYDROCHLORIDE
     Dosage: 25.0 MG, UNK
     Route: 065
  33. ERGOCALCIFEROL. [Suspect]
     Active Substance: ERGOCALCIFEROL
     Dosage: UNK UNK, QD
     Route: 065
  34. VITAMIN D                          /00107901/ [Suspect]
     Active Substance: ERGOCALCIFEROL
     Indication: OSTEOPOROSIS
     Dosage: 1000.0 DF, QD
     Route: 065
  35. BETAHISTINE [Suspect]
     Active Substance: BETAHISTINE
     Indication: VERTIGO
     Dosage: 8 MG, QD
     Route: 065
  36. BETAHISTINE [Suspect]
     Active Substance: BETAHISTINE
     Dosage: 8 MG, TID
     Route: 065
  37. TIMOLOL. [Suspect]
     Active Substance: TIMOLOL
     Dosage: UNK
     Route: 065
  38. APO-CANDESARTAN [Suspect]
     Active Substance: CANDESARTAN
     Indication: HYPERTENSION
     Dosage: 4.0 MG, QD
     Route: 065
  39. APO-LEVOCARB CR [Suspect]
     Active Substance: CARBIDOPA\LEVODOPA
     Dosage: UNK UNK, TID
     Route: 065
  40. TRAZODONE [Suspect]
     Active Substance: TRAZODONE HYDROCHLORIDE
     Dosage: 25 MG, UNK
     Route: 048
  41. BETAHISTINE [Suspect]
     Active Substance: BETAHISTINE
     Dosage: 8 MG, UNK
     Route: 065
  42. BISOPROLOL [Suspect]
     Active Substance: BISOPROLOL
     Indication: PRODUCT USED FOR UNKNOWN INDICATION
     Dosage: 1.25 MG, QD
     Route: 065
  43. CETIRIZINE [Suspect]
     Active Substance: CETIRIZINE HYDROCHLORIDE
     Indication: EYE PRURITUS
     Dosage: 20 MG, QD
     Route: 065
  44. RISEDRONATE [Suspect]
     Active Substance: RISEDRONATE SODIUM
     Dosage: 150 MG, QD
     Route: 065
  45. APO-CETIRIZINE [Suspect]
     Active Substance: CETIRIZINE HYDROCHLORIDE
     Indication: EYE PRURITUS
     Dosage: 20.0 MG, QD
     Route: 065
  46. APO-CITALOPRAM [Suspect]
     Active Substance: CITALOPRAM HYDROBROMIDE
     Indication: DEPRESSED MOOD
     Dosage: UNK, QD
     Route: 065
  47. APO-METOCLOP [Suspect]
     Active Substance: METOCLOPRAMIDE HYDROCHLORIDE
     Indication: DIVERTICULITIS
     Dosage: 10.0 MG, TID
     Route: 065
  48. APO-MIRTAZAPINE [Suspect]
     Active Substance: MIRTAZAPINE
     Indication: DEPRESSED MOOD
     Dosage: 7.5 MG, QD
     Route: 065
  49. APO-TIMOP [Suspect]
     Active Substance: TIMOLOL MALEATE
     Indication: GLAUCOMA
     Dosage: 1 DF, BID
     Route: 047
  50. ACTONEL [Suspect]
     Active Substance: RISEDRONATE SODIUM
     Indication: OSTEOPOROSIS
     Dosage: 150 MG, QD
     Route: 065
  51. MIRTAZAPINE. [Suspect]
     Active Substance: MIRTAZAPINE
     Indication: DEPRESSED MOOD
     Dosage: 7.5 MG, QD
     Route: 065
  52. TIMOLOL. [Suspect]
     Active Substance: TIMOLOL
     Indication: GLAUCOMA
     Dosage: UNK, BID
     Route: 047
  53. LEVOCARB CR [Suspect]
     Active Substance: CARBIDOPA\LEVODOPA
     Indication: PARKINSON^S DISEASE
     Dosage: UNK UNK, TID
     Route: 065
  54. TRAZODONE [Suspect]
     Active Substance: TRAZODONE HYDROCHLORIDE
     Indication: INSOMNIA
     Dosage: 50 MG, QD
     Route: 048
  55. RISEDRONIC ACID [Suspect]
     Active Substance: RISEDRONIC ACID
     Dosage: 5.0 MG, QD
     Route: 065
  56. APO-BISOPROLOL [Suspect]
     Active Substance: BISOPROLOL FUMARATE
     Dosage: 1 DF, QD
     Route: 065
  57. APO-RISEDRONATE [Suspect]
     Active Substance: RISEDRONATE SODIUM
     Indication: OSTEOPOROSIS
     Dosage: 150.0 MG, UNK
     Route: 065
  58. ROSUVASTATIN. [Suspect]
     Active Substance: ROSUVASTATIN
     Indication: HAEMORRHAGIC STROKE
     Dosage: 20 MG, QD
     Route: 065
  59. METOCLOPRAMIDE. [Suspect]
     Active Substance: METOCLOPRAMIDE
     Indication: DIVERTICULITIS
     Dosage: 10 MG, TID
     Route: 065
  60. RISEDRONIC ACID [Suspect]
     Active Substance: RISEDRONIC ACID
     Dosage: 150 MG, Q.M.T.
     Route: 065
  61. APO-ROSUVASTATIN [Suspect]
     Active Substance: ROSUVASTATIN
     Indication: HAEMORRHAGIC STROKE
     Dosage: 20.0 MG, QD
     Route: 065
  62. APO-TRAZODONE [Suspect]
     Active Substance: TRAZODONE HYDROCHLORIDE
     Indication: INSOMNIA
     Dosage: 50 MG, QD
     Route: 048
  63. VITAMIN D2 [Suspect]
     Active Substance: ERGOCALCIFEROL
     Indication: OSTEOPOROSIS
     Dosage: 1000.0 IU, UNK
     Route: 065
  64. TRAZODONE [Suspect]
     Active Substance: TRAZODONE HYDROCHLORIDE
     Dosage: 50 MG, UNK
     Route: 048

REACTIONS (22)
  - Depressed mood [Recovered/Resolved]
  - Vitamin B12 decreased [Recovered/Resolved]
  - Vertigo [Recovered/Resolved]
  - Nausea [Recovered/Resolved]
  - Abdominal distension [Recovered/Resolved]
  - Hypotension [Recovered/Resolved]
  - Fatigue [Recovered/Resolved]
  - Dizziness [Recovered/Resolved]
  - Eye pruritus [Recovered/Resolved]
  - Lacrimation increased [Recovered/Resolved]
  - Hypersensitivity [Recovered/Resolved]
  - Decreased appetite [Recovered/Resolved]
  - Vomiting [Recovered/Resolved]
  - Product use in unapproved indication [Not Recovered/Not Resolved]
  - Parkinson^s disease [Recovered/Resolved]
  - Condition aggravated [Recovered/Resolved]
  - Fall [Recovered/Resolved]
  - Constipation [Recovered/Resolved]
  - Dry mouth [Recovered/Resolved]
  - Drug ineffective [Not Recovered/Not Resolved]
  - Off label use [Not Recovered/Not Resolved]
  - Loss of personal independence in daily activities [Recovered/Resolved]
